FAERS Safety Report 4891303-5 (Version None)
Quarter: 2006Q1

REPORT INFORMATION
  Report Type: 
  Country: None (occurrence: None)
  Receive Date: 20060123
  Receipt Date: 20060116
  Transmission Date: 20060701
  Serious: Yes (Death)
  Sender: FDA-Public Use
  Company Number: 2006-137356-NL

PATIENT
  Age: 69 Year
  Sex: Male

DRUGS (6)
  1. DEXAMETHASONE TAB [Suspect]
     Indication: INTRACRANIAL PRESSURE INCREASED
     Dosage: 8 MG ORAL
     Route: 048
     Dates: start: 20050801
  2. OMEPRAZOLE [Concomitant]
  3. GLICLAZIDE [Concomitant]
  4. BENDROFLUAZIDE [Concomitant]
  5. ATENOLOL [Concomitant]
  6. ACETYLSALICYLIC ACID SRT [Concomitant]

REACTIONS (1)
  - GASTROINTESTINAL PERFORATION [None]
